FAERS Safety Report 23466907 (Version 2)
Quarter: 2024Q1

REPORT INFORMATION
  Report Type: Other
  Country: US (occurrence: US)
  Receive Date: 20240201
  Receipt Date: 20240312
  Transmission Date: 20240410
  Serious: Yes (Life-Threatening, Other)
  Sender: FDA-Public Use
  Company Number: US-C B Fleet Co Inc-202309-US-002917

PATIENT
  Age: 38 Year
  Sex: Female

DRUGS (5)
  1. DIPHENHYDRAMINE HYDROCHLORIDE [Suspect]
     Active Substance: DIPHENHYDRAMINE HYDROCHLORIDE
     Indication: Intentional overdose
     Dosage: 50-60 TABS
  2. BENZODIAZEPINE [Concomitant]
     Active Substance: BENZODIAZEPINE
  3. DIAZEPAM [Concomitant]
     Active Substance: DIAZEPAM
     Dosage: QID
  4. VENLAFAXINE [Concomitant]
     Active Substance: VENLAFAXINE HYDROCHLORIDE
     Dosage: Q AM
  5. VENLAFAXINE [Concomitant]
     Active Substance: VENLAFAXINE HYDROCHLORIDE
     Dosage: Q PM

REACTIONS (3)
  - Toxicity to various agents [Unknown]
  - Intentional overdose [Unknown]
  - Maternal exposure during pregnancy [Unknown]
